FAERS Safety Report 25598913 (Version 2)
Quarter: 2025Q3

REPORT INFORMATION
  Report Type: Spontaneous
  Country: CA (occurrence: CA)
  Receive Date: 20250724
  Receipt Date: 20250725
  Transmission Date: 20251020
  Serious: Yes (Death, Life-Threatening, Hospitalization, Disabling, Congenital Anomaly, Other)
  Sender: NOVARTIS
  Company Number: CA-002147023-NVSC2024CA108264

PATIENT
  Age: 43 Year
  Sex: Female
  Weight: 68 kg

DRUGS (218)
  1. CELECOXIB [Suspect]
     Active Substance: CELECOXIB
     Indication: Product used for unknown indication
     Route: 058
  2. CELECOXIB [Suspect]
     Active Substance: CELECOXIB
     Dosage: 1 DOSAGE FORM, QD
     Route: 065
  3. CELECOXIB [Suspect]
     Active Substance: CELECOXIB
     Route: 065
  4. CELECOXIB [Suspect]
     Active Substance: CELECOXIB
     Dosage: 2 DOSAGE FORM, QD
     Route: 048
  5. CETIRIZINE [Suspect]
     Active Substance: CETIRIZINE HYDROCHLORIDE
     Indication: Product used for unknown indication
     Route: 065
  6. CETIRIZINE [Suspect]
     Active Substance: CETIRIZINE HYDROCHLORIDE
     Route: 065
  7. CETIRIZINE [Suspect]
     Active Substance: CETIRIZINE HYDROCHLORIDE
     Route: 048
  8. CETIRIZINE [Suspect]
     Active Substance: CETIRIZINE HYDROCHLORIDE
     Dosage: 10 MG, QD
     Route: 048
  9. CETIRIZINE [Suspect]
     Active Substance: CETIRIZINE HYDROCHLORIDE
     Route: 048
  10. CETIRIZINE [Suspect]
     Active Substance: CETIRIZINE HYDROCHLORIDE
     Route: 065
  11. CETIRIZINE [Suspect]
     Active Substance: CETIRIZINE HYDROCHLORIDE
     Route: 065
  12. ERELZI [Suspect]
     Active Substance: ETANERCEPT-SZZS
     Indication: Product used for unknown indication
     Route: 058
  13. ERELZI [Suspect]
     Active Substance: ETANERCEPT-SZZS
     Route: 058
  14. INFLIXIMAB [Suspect]
     Active Substance: INFLIXIMAB
     Indication: Product used for unknown indication
     Route: 065
  15. INFLIXIMAB [Suspect]
     Active Substance: INFLIXIMAB
     Route: 042
  16. METHOTREXATE [Suspect]
     Active Substance: METHOTREXATE
     Indication: Rheumatoid arthritis
     Route: 048
  17. METHOTREXATE [Suspect]
     Active Substance: METHOTREXATE
     Indication: Product used for unknown indication
     Route: 048
  18. METHOTREXATE [Suspect]
     Active Substance: METHOTREXATE
     Route: 013
  19. METHOTREXATE [Suspect]
     Active Substance: METHOTREXATE
     Dosage: 15 MG, QD
     Route: 048
  20. METHOTREXATE [Suspect]
     Active Substance: METHOTREXATE
     Route: 048
  21. METHOTREXATE [Suspect]
     Active Substance: METHOTREXATE
     Route: 048
  22. METHOTREXATE [Suspect]
     Active Substance: METHOTREXATE
     Dosage: 20 MG, QD
     Route: 058
  23. METHOTREXATE [Suspect]
     Active Substance: METHOTREXATE
     Route: 016
  24. METHOTREXATE [Suspect]
     Active Substance: METHOTREXATE
     Dosage: 25 MG, QD
     Route: 048
  25. METHOTREXATE [Suspect]
     Active Substance: METHOTREXATE
     Route: 065
  26. METHOTREXATE [Suspect]
     Active Substance: METHOTREXATE
     Route: 048
  27. METHOTREXATE [Suspect]
     Active Substance: METHOTREXATE
     Route: 058
  28. METHOTREXATE [Suspect]
     Active Substance: METHOTREXATE
     Route: 013
  29. METHOTREXATE [Suspect]
     Active Substance: METHOTREXATE
     Route: 048
  30. METHOTREXATE [Suspect]
     Active Substance: METHOTREXATE
     Dosage: 20 MG, QD
     Route: 065
  31. METHOTREXATE [Suspect]
     Active Substance: METHOTREXATE
     Dosage: 200 MG, QD
     Route: 048
  32. METHOTREXATE [Suspect]
     Active Substance: METHOTREXATE
     Route: 058
  33. METHOTREXATE [Suspect]
     Active Substance: METHOTREXATE
     Dosage: 25 MG, QW
     Route: 013
  34. METHOTREXATE [Suspect]
     Active Substance: METHOTREXATE
     Dosage: 1 G, Q24H
     Route: 048
  35. METHOTREXATE [Suspect]
     Active Substance: METHOTREXATE
     Route: 065
  36. METHOTREXATE [Suspect]
     Active Substance: METHOTREXATE
     Route: 048
  37. METHOTREXATE [Suspect]
     Active Substance: METHOTREXATE
     Dosage: 15 MG, Q12H
     Route: 048
  38. METHOTREXATE [Suspect]
     Active Substance: METHOTREXATE
     Dosage: 20 MG, QW
     Route: 048
  39. METHOTREXATE [Suspect]
     Active Substance: METHOTREXATE
     Route: 048
  40. METHOTREXATE [Suspect]
     Active Substance: METHOTREXATE
     Route: 048
  41. METHOTREXATE [Suspect]
     Active Substance: METHOTREXATE
     Dosage: 25 MG, Q24H
     Route: 014
  42. METHOTREXATE [Suspect]
     Active Substance: METHOTREXATE
     Dosage: 20 MG, Q24H
     Route: 048
  43. METHOTREXATE [Suspect]
     Active Substance: METHOTREXATE
     Route: 014
  44. METHOTREXATE [Suspect]
     Active Substance: METHOTREXATE
     Dosage: 25 MG, QD
     Route: 048
  45. METHOTREXATE [Suspect]
     Active Substance: METHOTREXATE
     Dosage: 1 G, BID
     Route: 048
  46. METHOTREXATE [Suspect]
     Active Substance: METHOTREXATE
     Dosage: 25 MG, BID
     Route: 048
  47. METHOTREXATE [Suspect]
     Active Substance: METHOTREXATE
     Dosage: 25 MG, QW
     Route: 013
  48. METHOTREXATE [Suspect]
     Active Substance: METHOTREXATE
     Route: 048
  49. METHOTREXATE [Suspect]
     Active Substance: METHOTREXATE
     Dosage: UNK, QW
     Route: 048
  50. METHOTREXATE [Suspect]
     Active Substance: METHOTREXATE
     Route: 051
  51. METHOTREXATE [Suspect]
     Active Substance: METHOTREXATE
     Dosage: 25 MG, QW
     Route: 058
  52. METHOTREXATE [Suspect]
     Active Substance: METHOTREXATE
     Dosage: 20 MG, QW
     Route: 058
  53. METHOTREXATE [Suspect]
     Active Substance: METHOTREXATE
     Dosage: 1 DOSAGE FORM, QD
     Route: 048
  54. METHOTREXATE [Suspect]
     Active Substance: METHOTREXATE
     Dosage: 15 MG, QW
     Route: 048
  55. METHOTREXATE [Suspect]
     Active Substance: METHOTREXATE
     Dosage: 1 G, Q12H
     Route: 048
  56. METHOTREXATE [Suspect]
     Active Substance: METHOTREXATE
     Dosage: 1 G, Q24H
     Route: 048
  57. METHOTREXATE [Suspect]
     Active Substance: METHOTREXATE
     Route: 048
  58. METHOTREXATE [Suspect]
     Active Substance: METHOTREXATE
     Dosage: 2 DOSAGE FORM, Q24H
     Route: 048
  59. METHOTREXATE [Suspect]
     Active Substance: METHOTREXATE
     Dosage: 20 MG, QW
     Route: 013
  60. MYCOPHENOLATE MOFETIL [Suspect]
     Active Substance: MYCOPHENOLATE MOFETIL
     Indication: Product used for unknown indication
     Route: 065
  61. QUETIAPINE [Suspect]
     Active Substance: QUETIAPINE
     Indication: Product used for unknown indication
     Route: 065
  62. OXYCODONE [Suspect]
     Active Substance: OXYCODONE
     Indication: Product used for unknown indication
     Route: 065
  63. OXYCODONE [Suspect]
     Active Substance: OXYCODONE
     Route: 065
  64. PREGABALIN [Suspect]
     Active Substance: PREGABALIN
     Indication: Product used for unknown indication
     Route: 065
  65. PREGABALIN [Suspect]
     Active Substance: PREGABALIN
     Indication: Fibromyalgia
  66. ERELZI [Suspect]
     Active Substance: ETANERCEPT-SZZS
     Indication: Rheumatoid arthritis
     Route: 058
  67. ERELZI [Suspect]
     Active Substance: ETANERCEPT-SZZS
     Route: 065
  68. ERELZI [Suspect]
     Active Substance: ETANERCEPT-SZZS
     Route: 058
  69. ERELZI [Suspect]
     Active Substance: ETANERCEPT-SZZS
     Dosage: 50 MG, QW
     Route: 058
  70. CANDESARTAN [Suspect]
     Active Substance: CANDESARTAN
     Indication: Migraine
     Route: 048
  71. RITUXIMAB [Suspect]
     Active Substance: RITUXIMAB
     Indication: Rheumatoid arthritis
     Route: 058
  72. RITUXIMAB [Suspect]
     Active Substance: RITUXIMAB
     Route: 043
  73. RITUXIMAB [Suspect]
     Active Substance: RITUXIMAB
     Route: 041
  74. RITUXIMAB [Suspect]
     Active Substance: RITUXIMAB
     Route: 042
  75. RITUXIMAB [Suspect]
     Active Substance: RITUXIMAB
     Route: 043
  76. RITUXIMAB [Suspect]
     Active Substance: RITUXIMAB
     Route: 042
  77. RITUXIMAB [Suspect]
     Active Substance: RITUXIMAB
     Route: 043
  78. RITUXIMAB [Suspect]
     Active Substance: RITUXIMAB
     Dosage: 2000 MG, QD
     Route: 065
  79. RITUXIMAB [Suspect]
     Active Substance: RITUXIMAB
     Route: 042
  80. RITUXIMAB [Suspect]
     Active Substance: RITUXIMAB
     Dosage: 2 G, QD
     Route: 042
  81. RITUXIMAB [Suspect]
     Active Substance: RITUXIMAB
     Route: 065
  82. RITUXIMAB [Suspect]
     Active Substance: RITUXIMAB
     Route: 043
  83. RITUXIMAB [Suspect]
     Active Substance: RITUXIMAB
     Route: 042
  84. COSENTYX [Suspect]
     Active Substance: SECUKINUMAB
     Indication: Psoriatic arthropathy
     Route: 065
  85. COSENTYX [Suspect]
     Active Substance: SECUKINUMAB
     Indication: Rheumatoid arthritis
     Route: 065
  86. COSENTYX [Suspect]
     Active Substance: SECUKINUMAB
     Route: 005
  87. COSENTYX [Suspect]
     Active Substance: SECUKINUMAB
     Route: 065
  88. AIMOVIG [Suspect]
     Active Substance: ERENUMAB-AOOE
     Indication: Migraine
     Route: 065
  89. VOLTAREN [Suspect]
     Active Substance: DICLOFENAC SODIUM
     Indication: Product used for unknown indication
     Route: 065
  90. HYDROXYCHLOROQUINE [Suspect]
     Active Substance: HYDROXYCHLOROQUINE
     Indication: Product used for unknown indication
     Dosage: 400 MG, QD
     Route: 048
  91. HYDROXYCHLOROQUINE [Suspect]
     Active Substance: HYDROXYCHLOROQUINE
     Dosage: 400 MG, QD
     Route: 058
  92. HYDROXYCHLOROQUINE [Suspect]
     Active Substance: HYDROXYCHLOROQUINE
     Dosage: 40 MG, QD
     Route: 048
  93. HYDROXYCHLOROQUINE [Suspect]
     Active Substance: HYDROXYCHLOROQUINE
     Route: 048
  94. HYDROXYCHLOROQUINE [Suspect]
     Active Substance: HYDROXYCHLOROQUINE
     Route: 048
  95. HYDROXYCHLOROQUINE SULFATE [Suspect]
     Active Substance: HYDROXYCHLOROQUINE SULFATE
     Indication: Product used for unknown indication
     Dosage: 400 MG, QD
     Route: 065
  96. HYDROXYCHLOROQUINE SULFATE [Suspect]
     Active Substance: HYDROXYCHLOROQUINE SULFATE
     Dosage: 4000 MG, QD
     Route: 049
  97. HYDROXYCHLOROQUINE SULFATE [Suspect]
     Active Substance: HYDROXYCHLOROQUINE SULFATE
     Dosage: 400 MG, QD
     Route: 048
  98. HYDROXYCHLOROQUINE SULFATE [Suspect]
     Active Substance: HYDROXYCHLOROQUINE SULFATE
     Route: 048
  99. HYDROXYCHLOROQUINE SULFATE [Suspect]
     Active Substance: HYDROXYCHLOROQUINE SULFATE
     Route: 065
  100. HYDROXYCHLOROQUINE SULFATE [Suspect]
     Active Substance: HYDROXYCHLOROQUINE SULFATE
     Route: 048
  101. HYDROXYCHLOROQUINE SULFATE [Suspect]
     Active Substance: HYDROXYCHLOROQUINE SULFATE
     Dosage: 40 MG, QD
     Route: 050
  102. HYDROXYCHLOROQUINE SULFATE [Suspect]
     Active Substance: HYDROXYCHLOROQUINE SULFATE
     Route: 048
  103. HYDROXYCHLOROQUINE SULFATE [Suspect]
     Active Substance: HYDROXYCHLOROQUINE SULFATE
     Route: 048
  104. HYDROXYCHLOROQUINE SULFATE [Suspect]
     Active Substance: HYDROXYCHLOROQUINE SULFATE
     Route: 065
  105. HYDROXYCHLOROQUINE SULFATE [Suspect]
     Active Substance: HYDROXYCHLOROQUINE SULFATE
     Dosage: 40 MG, QD
     Route: 050
  106. HYDROXYCHLOROQUINE SULFATE [Suspect]
     Active Substance: HYDROXYCHLOROQUINE SULFATE
     Dosage: 40 MG, QD
     Route: 048
  107. NITROFURAZONE [Suspect]
     Active Substance: NITROFURAZONE
     Indication: Product used for unknown indication
     Route: 048
  108. NITROFURAZONE [Suspect]
     Active Substance: NITROFURAZONE
     Route: 048
  109. NITROFURAZONE [Suspect]
     Active Substance: NITROFURAZONE
     Dosage: 1000 MG, QD
     Route: 048
  110. NITROFURAZONE [Suspect]
     Active Substance: NITROFURAZONE
     Route: 048
  111. ORENCIA [Suspect]
     Active Substance: ABATACEPT
     Indication: Product used for unknown indication
     Route: 042
  112. ORENCIA [Suspect]
     Active Substance: ABATACEPT
     Dosage: 17.86 MG, QD
     Route: 042
  113. ORENCIA [Suspect]
     Active Substance: ABATACEPT
     Route: 065
  114. ORENCIA [Suspect]
     Active Substance: ABATACEPT
     Route: 053
  115. ORENCIA [Suspect]
     Active Substance: ABATACEPT
     Dosage: 17.88 MG, QD
     Route: 065
  116. ORENCIA [Suspect]
     Active Substance: ABATACEPT
     Route: 058
  117. ORENCIA [Suspect]
     Active Substance: ABATACEPT
     Dosage: 18 MG, QD
     Route: 065
  118. ORENCIA [Suspect]
     Active Substance: ABATACEPT
     Route: 058
  119. ORENCIA [Suspect]
     Active Substance: ABATACEPT
     Route: 058
  120. ORENCIA [Suspect]
     Active Substance: ABATACEPT
     Route: 042
  121. ORENCIA [Suspect]
     Active Substance: ABATACEPT
     Route: 058
  122. ORENCIA [Suspect]
     Active Substance: ABATACEPT
     Route: 058
  123. ORENCIA [Suspect]
     Active Substance: ABATACEPT
     Route: 042
  124. ORENCIA [Suspect]
     Active Substance: ABATACEPT
     Dosage: 120 MG, QD
     Route: 058
  125. ORENCIA [Suspect]
     Active Substance: ABATACEPT
     Route: 065
  126. ORENCIA [Suspect]
     Active Substance: ABATACEPT
     Dosage: 125 MG, QW
     Route: 058
  127. ORENCIA [Suspect]
     Active Substance: ABATACEPT
     Route: 053
  128. ORENCIA [Suspect]
     Active Substance: ABATACEPT
     Route: 058
  129. ORENCIA [Suspect]
     Active Substance: ABATACEPT
     Route: 058
  130. OTEZLA [Suspect]
     Active Substance: APREMILAST
     Indication: Product used for unknown indication
     Dosage: 6 MG, QD
     Route: 065
  131. OTEZLA [Suspect]
     Active Substance: APREMILAST
     Dosage: 6 MG, QD
     Route: 048
  132. OTEZLA [Suspect]
     Active Substance: APREMILAST
     Route: 065
  133. OTEZLA [Suspect]
     Active Substance: APREMILAST
     Route: 048
  134. OTEZLA [Suspect]
     Active Substance: APREMILAST
     Route: 065
  135. OTEZLA [Suspect]
     Active Substance: APREMILAST
     Route: 048
  136. OTEZLA [Suspect]
     Active Substance: APREMILAST
     Route: 065
  137. PHTHALYLSULFATHIAZOLE [Suspect]
     Active Substance: PHTHALYLSULFATHIAZOLE
     Indication: Product used for unknown indication
     Dosage: 2000 MG, QD
     Route: 058
  138. PHTHALYLSULFATHIAZOLE [Suspect]
     Active Substance: PHTHALYLSULFATHIAZOLE
     Dosage: 1000 MG, QD
     Route: 048
  139. PHTHALYLSULFATHIAZOLE [Suspect]
     Active Substance: PHTHALYLSULFATHIAZOLE
     Dosage: 2000 MG, QD
     Route: 048
  140. PHTHALYLSULFATHIAZOLE [Suspect]
     Active Substance: PHTHALYLSULFATHIAZOLE
     Route: 048
  141. PHTHALYLSULFATHIAZOLE [Suspect]
     Active Substance: PHTHALYLSULFATHIAZOLE
     Route: 050
  142. PHTHALYLSULFATHIAZOLE [Suspect]
     Active Substance: PHTHALYLSULFATHIAZOLE
     Route: 016
  143. PHTHALYLSULFATHIAZOLE [Suspect]
     Active Substance: PHTHALYLSULFATHIAZOLE
     Route: 065
  144. PHTHALYLSULFATHIAZOLE [Suspect]
     Active Substance: PHTHALYLSULFATHIAZOLE
     Route: 016
  145. PHTHALYLSULFATHIAZOLE [Suspect]
     Active Substance: PHTHALYLSULFATHIAZOLE
     Dosage: 2000 MG, QD
     Route: 048
  146. PHTHALYLSULFATHIAZOLE [Suspect]
     Active Substance: PHTHALYLSULFATHIAZOLE
     Dosage: 500 MG, QD
     Route: 048
  147. PHTHALYLSULFATHIAZOLE [Suspect]
     Active Substance: PHTHALYLSULFATHIAZOLE
     Dosage: 1000 MG, QD
     Route: 048
  148. PHTHALYLSULFATHIAZOLE [Suspect]
     Active Substance: PHTHALYLSULFATHIAZOLE
     Route: 048
  149. PREDNISONE [Suspect]
     Active Substance: PREDNISONE
     Indication: Product used for unknown indication
     Route: 048
  150. PREDNISONE [Suspect]
     Active Substance: PREDNISONE
     Route: 065
  151. PREDNISONE [Suspect]
     Active Substance: PREDNISONE
     Route: 048
  152. PREDNISONE [Suspect]
     Active Substance: PREDNISONE
     Route: 065
  153. PREDNISONE [Suspect]
     Active Substance: PREDNISONE
     Route: 048
  154. PREDNISONE [Suspect]
     Active Substance: PREDNISONE
     Route: 048
  155. PREDNISONE [Suspect]
     Active Substance: PREDNISONE
     Route: 048
  156. PREDNISONE [Suspect]
     Active Substance: PREDNISONE
     Route: 048
  157. PREDNISONE [Suspect]
     Active Substance: PREDNISONE
     Route: 048
  158. PREDNISONE [Suspect]
     Active Substance: PREDNISONE
     Route: 048
  159. PREDNISONE [Suspect]
     Active Substance: PREDNISONE
     Route: 065
  160. SULFASALAZINE [Suspect]
     Active Substance: SULFASALAZINE
     Indication: Product used for unknown indication
     Route: 058
  161. SULFASALAZINE [Suspect]
     Active Substance: SULFASALAZINE
     Dosage: 2000 MG, QD
     Route: 048
  162. SULFASALAZINE [Suspect]
     Active Substance: SULFASALAZINE
     Route: 058
  163. SULFASALAZINE [Suspect]
     Active Substance: SULFASALAZINE
     Route: 058
  164. SULFASALAZINE [Suspect]
     Active Substance: SULFASALAZINE
     Route: 058
  165. SULFASALAZINE [Suspect]
     Active Substance: SULFASALAZINE
     Route: 058
  166. SULFASALAZINE [Suspect]
     Active Substance: SULFASALAZINE
     Route: 058
  167. SULFASALAZINE [Suspect]
     Active Substance: SULFASALAZINE
     Dosage: 500 MG, QD
     Route: 058
  168. SULFASALAZINE [Suspect]
     Active Substance: SULFASALAZINE
     Route: 058
  169. SULFASALAZINE [Suspect]
     Active Substance: SULFASALAZINE
     Route: 058
  170. SULFASALAZINE [Suspect]
     Active Substance: SULFASALAZINE
     Route: 058
  171. SULFASALAZINE [Suspect]
     Active Substance: SULFASALAZINE
     Route: 058
  172. SULFASALAZINE [Suspect]
     Active Substance: SULFASALAZINE
     Route: 058
  173. SULFASALAZINE [Suspect]
     Active Substance: SULFASALAZINE
     Route: 058
  174. TOCILIZUMAB [Suspect]
     Active Substance: TOCILIZUMAB
     Indication: Product used for unknown indication
     Route: 042
  175. TOCILIZUMAB [Suspect]
     Active Substance: TOCILIZUMAB
     Route: 058
  176. TOCILIZUMAB [Suspect]
     Active Substance: TOCILIZUMAB
     Dosage: 2912.0 MG, QW
     Route: 042
  177. TOCILIZUMAB [Suspect]
     Active Substance: TOCILIZUMAB
     Route: 048
  178. TOCILIZUMAB [Suspect]
     Active Substance: TOCILIZUMAB
     Route: 058
  179. TOCILIZUMAB [Suspect]
     Active Substance: TOCILIZUMAB
     Route: 058
  180. TOCILIZUMAB [Suspect]
     Active Substance: TOCILIZUMAB
     Route: 058
  181. TOCILIZUMAB [Suspect]
     Active Substance: TOCILIZUMAB
     Route: 042
  182. TOCILIZUMAB [Suspect]
     Active Substance: TOCILIZUMAB
     Route: 016
  183. TOCILIZUMAB [Suspect]
     Active Substance: TOCILIZUMAB
     Route: 042
  184. TOCILIZUMAB [Suspect]
     Active Substance: TOCILIZUMAB
     Dosage: 752 MG, QW
     Route: 065
  185. TOCILIZUMAB [Suspect]
     Active Substance: TOCILIZUMAB
     Route: 042
  186. TOCILIZUMAB [Suspect]
     Active Substance: TOCILIZUMAB
     Dosage: 2912 MG, QW
     Route: 042
  187. TOCILIZUMAB [Suspect]
     Active Substance: TOCILIZUMAB
     Route: 042
  188. TOCILIZUMAB [Suspect]
     Active Substance: TOCILIZUMAB
     Route: 042
  189. TOCILIZUMAB [Suspect]
     Active Substance: TOCILIZUMAB
     Route: 058
  190. TOCILIZUMAB [Suspect]
     Active Substance: TOCILIZUMAB
     Route: 042
  191. TOCILIZUMAB [Suspect]
     Active Substance: TOCILIZUMAB
     Route: 042
  192. TOCILIZUMAB [Suspect]
     Active Substance: TOCILIZUMAB
     Route: 042
  193. TOCILIZUMAB [Suspect]
     Active Substance: TOCILIZUMAB
     Route: 048
  194. TOCILIZUMAB [Suspect]
     Active Substance: TOCILIZUMAB
     Route: 058
  195. TOCILIZUMAB [Suspect]
     Active Substance: TOCILIZUMAB
     Route: 058
  196. TOCILIZUMAB [Suspect]
     Active Substance: TOCILIZUMAB
     Dosage: 752 MG, QW
     Route: 065
  197. TOCILIZUMAB [Suspect]
     Active Substance: TOCILIZUMAB
     Route: 016
  198. CHLORHEXIDINE [Suspect]
     Active Substance: CHLORHEXIDINE
     Indication: Product used for unknown indication
     Route: 002
  199. CHLORHEXIDINE [Suspect]
     Active Substance: CHLORHEXIDINE
     Route: 048
  200. CHLORHEXIDINE [Suspect]
     Active Substance: CHLORHEXIDINE
     Route: 065
  201. QUETIAPINE FUMARATE [Suspect]
     Active Substance: QUETIAPINE FUMARATE
     Indication: Product used for unknown indication
     Route: 065
  202. POLYSPORIN [Suspect]
     Active Substance: BACITRACIN ZINC\POLYMYXIN B SULFATE
     Indication: Product used for unknown indication
     Route: 065
  203. ROBAXACET [Suspect]
     Active Substance: ACETAMINOPHEN\METHOCARBAMOL
     Indication: Product used for unknown indication
     Route: 065
  204. ROBAXACET [Suspect]
     Active Substance: ACETAMINOPHEN\METHOCARBAMOL
     Route: 065
  205. TOFACITINIB [Suspect]
     Active Substance: TOFACITINIB
     Indication: Product used for unknown indication
     Route: 065
  206. TOFACITINIB [Suspect]
     Active Substance: TOFACITINIB
     Dosage: 10 MG, QD
     Route: 048
  207. TUMS [Suspect]
     Active Substance: CALCIUM CARBONATE
     Indication: Product used for unknown indication
     Route: 016
  208. PSEUDOEPHEDRINE HYDROCHLORIDE [Suspect]
     Active Substance: PSEUDOEPHEDRINE HYDROCHLORIDE
     Indication: Product used for unknown indication
     Route: 065
  209. HYDROCORTISONE [Suspect]
     Active Substance: HYDROCORTISONE
     Indication: Rheumatoid arthritis
     Route: 048
  210. HYDROCORTISONE [Suspect]
     Active Substance: HYDROCORTISONE
     Route: 048
  211. HYDROCORTISONE [Suspect]
     Active Substance: HYDROCORTISONE
     Route: 058
  212. HYDROCORTISONE [Suspect]
     Active Substance: HYDROCORTISONE
     Route: 048
  213. HYDROCORTISONE [Suspect]
     Active Substance: HYDROCORTISONE
     Route: 065
  214. CETIRIZINE HYDROCHLORIDE [Suspect]
     Active Substance: CETIRIZINE HYDROCHLORIDE
     Indication: Rheumatoid arthritis
     Route: 065
  215. VITAMIN B COMPLEX [Suspect]
     Active Substance: CYANOCOBALAMIN\DEXPANTHENOL\NIACINAMIDE\PYRIDOXINE HYDROCHLORIDE\RIBOFLAVIN 5^-PHOSPHATE SODIUM\THIA
     Indication: Product used for unknown indication
     Route: 016
  216. ELBASVIR [Suspect]
     Active Substance: ELBASVIR
     Indication: Rheumatoid arthritis
     Route: 058
  217. ACTIFED (PSEUDOEPHEDRINE HYDROCHLORIDE\TRIPROLIDINE HYDROCHLORIDE) [Suspect]
     Active Substance: PSEUDOEPHEDRINE HYDROCHLORIDE\TRIPROLIDINE HYDROCHLORIDE
     Indication: Rheumatoid arthritis
     Route: 065
  218. LANSOPRAZOLE [Suspect]
     Active Substance: LANSOPRAZOLE
     Indication: Rheumatoid arthritis
     Route: 048

REACTIONS (37)
  - Laryngitis [Fatal]
  - Liver function test increased [Fatal]
  - Abdominal distension [Fatal]
  - Prescribed overdose [Fatal]
  - Prescribed underdose [Fatal]
  - Red blood cell sedimentation rate increased [Fatal]
  - Rheumatoid factor positive [Fatal]
  - Sinusitis [Fatal]
  - Product label confusion [Fatal]
  - Sleep disorder due to general medical condition, insomnia type [Fatal]
  - Spondylitis [Fatal]
  - Stomatitis [Fatal]
  - Swelling [Fatal]
  - Swollen joint count increased [Fatal]
  - Synovitis [Fatal]
  - Systemic lupus erythematosus [Fatal]
  - Tachycardia [Fatal]
  - Type 2 diabetes mellitus [Fatal]
  - Upper respiratory tract infection [Fatal]
  - Urticaria [Fatal]
  - Visual impairment [Fatal]
  - Vomiting [Fatal]
  - Weight decreased [Fatal]
  - Weight increased [Fatal]
  - Wheezing [Fatal]
  - Wound [Fatal]
  - Wound infection [Fatal]
  - Sleep disorder [Fatal]
  - Pain in extremity [Fatal]
  - Onychomadesis [Fatal]
  - Off label use [Fatal]
  - Night sweats [Fatal]
  - Neck pain [Fatal]
  - Nail disorder [Fatal]
  - Infusion site reaction [Fatal]
  - Coeliac disease [Fatal]
  - Back injury [Fatal]
